FAERS Safety Report 19913307 (Version 1)
Quarter: 2021Q4

REPORT INFORMATION
  Report Type: Spontaneous
  Country: FI (occurrence: FI)
  Receive Date: 20211004
  Receipt Date: 20211004
  Transmission Date: 20220303
  Serious: Yes (Other)
  Sender: FDA-Public Use
  Company Number: None

PATIENT
  Age: 28 Year
  Sex: Female

DRUGS (3)
  1. OLANZAPINE [Suspect]
     Active Substance: OLANZAPINE
     Indication: Initial insomnia
     Dosage: 2.5 MG, DAILY
     Route: 048
     Dates: start: 20210520, end: 20210527
  2. OXAZEPAM [Concomitant]
     Active Substance: OXAZEPAM
     Indication: Panic disorder
     Dosage: 15 MG, DAILY
     Route: 048
     Dates: start: 201910
  3. AGOMELATINE [Concomitant]
     Active Substance: AGOMELATINE
     Indication: Insomnia
     Dosage: 50 MG, DAILY
     Route: 048
     Dates: start: 202105

REACTIONS (7)
  - Depressed level of consciousness [Recovered/Resolved]
  - Derealisation [Recovered/Resolved]
  - Hallucination, auditory [Recovered/Resolved]
  - Hallucination, visual [Recovered/Resolved]
  - Delusion [Recovered/Resolved]
  - Mental impairment [Recovered/Resolved]
  - Off label use [Unknown]

NARRATIVE: CASE EVENT DATE: 20210521
